FAERS Safety Report 5721508-2 (Version None)
Quarter: 2008Q2

REPORT INFORMATION
  Report Type: 
  Country: None (occurrence: None)
  Receive Date: 20080428
  Receipt Date: 20080428
  Transmission Date: 20081010
  Serious: Yes (Hospitalization)
  Sender: FDA-Public Use
  Company Number: None

PATIENT
  Age: 42 Year
  Sex: Female

DRUGS (1)
  1. DEPO-PROVERA SUSPENSION/INJ [Suspect]
     Dosage: 150MG EVERY 3 MONTHS IM (DURATION: 1 DOSE)
     Route: 030
     Dates: start: 20080423, end: 20080423

REACTIONS (1)
  - DRUG HYPERSENSITIVITY [None]
